FAERS Safety Report 9364817 (Version 1)
Quarter: 2013Q2

REPORT INFORMATION
  Report Type: Spontaneous
  Country: US (occurrence: US)
  Receive Date: 20130624
  Receipt Date: 20130624
  Transmission Date: 20140414
  Serious: Yes (Other)
  Sender: FDA-Public Use
  Company Number: US-PFIZER INC-2013183371

PATIENT
  Age: 66 Year
  Sex: Female
  Weight: 106.6 kg

DRUGS (1)
  1. PREPARATION H HEMORRHOIDAL SUPPOSITORIES [Suspect]
     Indication: HAEMORRHOIDS
     Dosage: UNK
     Route: 054

REACTIONS (3)
  - Diabetes mellitus [Unknown]
  - Expired drug administered [Unknown]
  - Poor quality drug administered [Unknown]
